FAERS Safety Report 18937467 (Version 1)
Quarter: 2021Q1

REPORT INFORMATION
  Report Type: Spontaneous
  Country: SA (occurrence: SA)
  Receive Date: 20210225
  Receipt Date: 20210225
  Transmission Date: 20210420
  Serious: Yes (Other)
  Sender: FDA-Public Use
  Company Number: SA-APOTEX-2021AP003797

PATIENT
  Sex: Male

DRUGS (1)
  1. SEROXAT [Suspect]
     Active Substance: PAROXETINE HYDROCHLORIDE
     Indication: PRODUCT USED FOR UNKNOWN INDICATION
     Dosage: 20 MILLIGRAM
     Route: 065

REACTIONS (5)
  - Dementia [Unknown]
  - Disturbance in attention [Unknown]
  - Hallucination [Unknown]
  - Feeling abnormal [Unknown]
  - Dysgraphia [Unknown]

NARRATIVE: CASE EVENT DATE: 20210212
